FAERS Safety Report 5896907-9 (Version None)
Quarter: 2008Q3

REPORT INFORMATION
  Report Type: 
  Country: None (occurrence: None)
  Receive Date: 20080924
  Receipt Date: 20080912
  Transmission Date: 20090109
  Serious: Yes (Hospitalization, Other)
  Sender: FDA-Public Use
  Company Number: BR-PFIZER INC-2008078823

PATIENT
  Sex: Male

DRUGS (2)
  1. SUTENT [Suspect]
     Indication: GASTROINTESTINAL STROMAL TUMOUR
     Dosage: DAILY DOSE:50MG
     Route: 048
     Dates: start: 20080501
  2. GLEEVEC [Concomitant]
     Route: 048
     Dates: start: 20051101, end: 20080201

REACTIONS (7)
  - GENERALISED OEDEMA [None]
  - LARYNGEAL OEDEMA [None]
  - MUCOSAL INFLAMMATION [None]
  - PYREXIA [None]
  - RASH GENERALISED [None]
  - STEVENS-JOHNSON SYNDROME [None]
  - TACHYCARDIA [None]
